FAERS Safety Report 24583577 (Version 2)
Quarter: 2024Q4

REPORT INFORMATION
  Report Type: Spontaneous
  Country: US (occurrence: US)
  Receive Date: 20241106
  Receipt Date: 20241122
  Transmission Date: 20250115
  Serious: Yes (Other)
  Sender: TEVA
  Company Number: US-TEVA-VS-3260746

PATIENT
  Age: 51 Year
  Sex: Female

DRUGS (1)
  1. IMATINIB [Suspect]
     Active Substance: IMATINIB
     Indication: Indolent systemic mastocytosis
     Route: 065
     Dates: start: 2015

REACTIONS (1)
  - Hypertransaminasaemia [Unknown]
